FAERS Safety Report 8836129 (Version 1)
Quarter: 2012Q4

REPORT INFORMATION
  Report Type: 
  Country: US (occurrence: US)
  Receive Date: 20121011
  Receipt Date: 20121011
  Transmission Date: 20130627
  Serious: Yes (Other)
  Sender: FDA-Public Use
  Company Number: US-TEVA-363725USA

PATIENT
  Sex: Male
  Weight: 79.45 kg

DRUGS (23)
  1. NUVIGIL [Suspect]
     Indication: SLEEP APNOEA SYNDROME
     Dosage: QAM
     Route: 048
     Dates: start: 201206
  2. NUVIGIL [Suspect]
     Indication: ANXIETY
  3. CLONAZEPAM [Concomitant]
     Indication: ANXIETY
     Dosage: QD, PRN
  4. AMPHETAMINE SALTS [Concomitant]
     Dosage: BID-TID
  5. DOMPERIDONE [Concomitant]
     Indication: GASTROINTESTINAL DISORDER THERAPY
     Dosage: 40 Microgram Daily; before meals and QHS
  6. CREON DR [Concomitant]
     Indication: SUPPLEMENTATION THERAPY
     Dosage: 24000units; 3 c w/meals and 1c w/sna
  7. PRISTIQ [Concomitant]
     Dosage: 150 mg, QAM
     Route: 048
  8. ABILIFY [Concomitant]
     Indication: DEPRESSION
     Dosage: QAM
     Route: 048
  9. GABAPENTIN [Concomitant]
     Indication: NEUROPATHY PERIPHERAL
     Dosage: 900 Milligram Daily; 2 c tid
     Route: 048
  10. LUNESTA [Concomitant]
     Indication: INSOMNIA
     Dosage: QHS
     Route: 048
  11. LUNESTA [Concomitant]
     Indication: RESTLESS LEGS SYNDROME
  12. ALIGN- OTC [Concomitant]
     Indication: GASTROINTESTINAL DISORDER THERAPY
     Route: 048
  13. TAMSULOSIN [Concomitant]
     Indication: URINARY TRACT DISORDER
     Dosage: .4 Milligram Daily;
     Route: 048
  14. FETA-TAB CR [Concomitant]
     Indication: RAYNAUD^S PHENOMENON
     Dosage: Q AM
     Route: 048
  15. PROMISED [Concomitant]
     Indication: ECZEMA
     Dosage: PRN
     Route: 061
  16. FLUOCINONIDE [Concomitant]
     Indication: ECZEMA
     Dosage: PRN
     Route: 061
  17. TRIAMCINOLONE ACETOR [Concomitant]
     Indication: ECZEMA
     Dosage: PRN
     Route: 061
  18. DESONIDE [Concomitant]
     Indication: ECZEMA
     Dosage: PRN
     Route: 061
  19. KETOCONAZOLE [Concomitant]
     Indication: ECZEMA
     Dosage: PRN
     Route: 061
  20. PREVACID SOLUTAB DR [Concomitant]
     Indication: GASTROINTESTINAL DISORDER THERAPY
     Dosage: 60 Milligram Daily;
     Route: 048
  21. MIRALAX- OTC [Concomitant]
     Dosage: PRN
     Route: 048
  22. NASONEX [Concomitant]
     Dosage: 50 Milligram Daily; 2 sprays in each nostral daily
  23. ADDERAL [Concomitant]

REACTIONS (10)
  - Suicidal ideation [Unknown]
  - Drug withdrawal syndrome [Recovered/Resolved]
  - Activities of daily living impaired [Recovered/Resolved]
  - Insomnia [Recovered/Resolved]
  - Fatigue [Recovered/Resolved]
  - Aphagia [Recovered/Resolved]
  - Diarrhoea [Recovered/Resolved]
  - Mental disorder [Recovered/Resolved]
  - Drug ineffective [Recovered/Resolved]
  - Off label use [Not Recovered/Not Resolved]
